FAERS Safety Report 7934630-7 (Version None)
Quarter: 2011Q4

REPORT INFORMATION
  Report Type: 
  Country: None (occurrence: None)
  Receive Date: 20111116
  Receipt Date: 20111102
  Transmission Date: 20120403
  Serious: Yes (Other)
  Sender: FDA-Public Use
  Company Number: 2011SP027982

PATIENT
  Age: 63 Year
  Sex: Male
  Weight: 76 kg

DRUGS (3)
  1. BOCEPREVIR (SCH-503034) [Suspect]
     Indication: HEPATITIS C
     Dosage: 800 MG;TID;
     Dates: start: 20110325
  2. VIRAFERONPEG [Suspect]
     Indication: HEPATITIS C
     Dosage: 120 MCG;QW;SC 100 MCG;QW;SC
     Route: 058
     Dates: start: 20110301
  3. REBETOL [Suspect]
     Indication: HEPATITIS C
     Dosage: 1000 MG;QD;PO
     Route: 048
     Dates: start: 20110301

REACTIONS (10)
  - CONJUNCTIVITIS [None]
  - NEUTROPENIA [None]
  - DRY MOUTH [None]
  - ASTHENIA [None]
  - ANAEMIA [None]
  - UNEVALUABLE EVENT [None]
  - AGEUSIA [None]
  - ORAL FUNGAL INFECTION [None]
  - WEIGHT DECREASED [None]
  - RASH PRURITIC [None]
